FAERS Safety Report 7453894-X (Version None)
Quarter: 2011Q2

REPORT INFORMATION
  Report Type: 
  Country: None (occurrence: None)
  Receive Date: 20110502
  Receipt Date: 20110419
  Transmission Date: 20111010
  Serious: No
  Sender: FDA-Public Use
  Company Number: US-BAYER-2011-034710

PATIENT
  Age: 49 Year
  Sex: Female
  Weight: 56.689 kg

DRUGS (1)
  1. AVELOX [Suspect]
     Indication: PRODUCT USED FOR UNKNOWN INDICATION

REACTIONS (3)
  - RASH MACULAR [None]
  - HYPERSENSITIVITY [None]
  - TONGUE DISORDER [None]
